FAERS Safety Report 7990022-6 (Version None)
Quarter: 2011Q4

REPORT INFORMATION
  Report Type: 
  Country: None (occurrence: None)
  Receive Date: 20111219
  Receipt Date: 20110201
  Transmission Date: 20120403
  Serious: No
  Sender: FDA-Public Use
  Company Number: US-ASTRAZENECA-2011SE05862

PATIENT
  Age: 59 Year
  Sex: Female

DRUGS (2)
  1. CRESTOR [Suspect]
     Route: 048
     Dates: start: 20100101
  2. NIASPAN [Concomitant]

REACTIONS (2)
  - RENAL INJURY [None]
  - BLOOD BILIRUBIN INCREASED [None]
